FAERS Safety Report 15406132 (Version 1)
Quarter: 2018Q4

REPORT INFORMATION
  Report Type: Spontaneous
  Country: DE (occurrence: DE)
  Receive Date: 20180920
  Receipt Date: 20180920
  Transmission Date: 20190204
  Serious: Yes (Other)
  Sender: FDA-Public Use
  Company Number: DE-TEVA-2018-DE-956540

PATIENT
  Age: 64 Year
  Sex: Male
  Weight: 85 kg

DRUGS (1)
  1. DICLOFENAC-RATIOPHARM, 75MG SL RETARDKAPSELN [Suspect]
     Active Substance: DICLOFENAC SODIUM
     Indication: MYOSITIS
     Dosage: 75 MILLIGRAM DAILY;
     Route: 048
     Dates: start: 20180724

REACTIONS (2)
  - Diarrhoea [Recovered/Resolved]
  - Haematochezia [Recovered/Resolved]

NARRATIVE: CASE EVENT DATE: 20180726
